FAERS Safety Report 16621442 (Version 1)
Quarter: 2019Q3

REPORT INFORMATION
  Report Type: Spontaneous
  Country: US (occurrence: US)
  Receive Date: 20190723
  Receipt Date: 20190723
  Transmission Date: 20191004
  Serious: No
  Sender: FDA-Public Use
  Company Number: US-OTSUKA-2018_035386

PATIENT
  Age: 24 Year
  Sex: Female

DRUGS (1)
  1. REXULTI [Suspect]
     Active Substance: BREXPIPRAZOLE
     Indication: BIPOLAR DISORDER
     Dosage: 1.75 MG,QD (ONE-QUARTER TABLETS OF THE 0.5MG TABLETS)
     Route: 048

REACTIONS (5)
  - Intrusive thoughts [Recovering/Resolving]
  - Drug ineffective for unapproved indication [Unknown]
  - Obsessive thoughts [Not Recovered/Not Resolved]
  - Wrong technique in product usage process [Unknown]
  - Poor quality sleep [Not Recovered/Not Resolved]
